FAERS Safety Report 10055522 (Version 3)
Quarter: 2014Q2

REPORT INFORMATION
  Report Type: Spontaneous
  Country: US (occurrence: US)
  Receive Date: 20140403
  Receipt Date: 20140505
  Transmission Date: 20141212
  Serious: Yes (Hospitalization)
  Sender: FDA-Public Use
  Company Number: US-ROCHE-1314329

PATIENT
  Sex: Female

DRUGS (15)
  1. XELODA [Suspect]
     Indication: BREAST CANCER FEMALE
     Dosage: 3 IN MORNING AND 2 IN EVENING/ ONE WEEK ON ONE OFF
     Route: 048
     Dates: start: 20130219
  2. XELODA [Suspect]
     Route: 048
     Dates: start: 20130428
  3. XELODA [Suspect]
     Route: 048
     Dates: start: 20130428
  4. XELODA [Suspect]
     Dosage: 3 TABS IN AM
     Route: 048
     Dates: start: 20130220
  5. XELODA [Suspect]
     Dosage: 2 TABS IN THE PM
     Route: 048
     Dates: start: 20130220
  6. PREVACID [Concomitant]
  7. AMIODARONE [Concomitant]
  8. COUMADIN [Concomitant]
  9. ALDACTONE (UNITED STATES) [Concomitant]
  10. VITAMIN C [Concomitant]
  11. FISH OIL [Concomitant]
  12. B6 VICOTRAT [Concomitant]
  13. VITAMIN E [Concomitant]
  14. VITAMIN B6 [Concomitant]
  15. VALIUM [Concomitant]
     Route: 065

REACTIONS (6)
  - Cellulitis [Recovered/Resolved]
  - Skin exfoliation [Unknown]
  - Skin fissures [Not Recovered/Not Resolved]
  - Skin hypertrophy [Unknown]
  - Pain in extremity [Unknown]
  - Skin fissures [Recovering/Resolving]
